FAERS Safety Report 25228377 (Version 1)
Quarter: 2025Q2

REPORT INFORMATION
  Report Type: Spontaneous
  Country: BR (occurrence: BR)
  Receive Date: 20250423
  Receipt Date: 20250423
  Transmission Date: 20250717
  Serious: Yes (Other)
  Sender: SANDOZ
  Company Number: BR-002147023-NVSC2024BR130658

PATIENT
  Age: 71 Year
  Sex: Female

DRUGS (15)
  1. KISQALI [Suspect]
     Active Substance: RIBOCICLIB SUCCINATE
     Indication: Product used for unknown indication
     Route: 065
  2. KISQALI [Suspect]
     Active Substance: RIBOCICLIB SUCCINATE
     Dosage: 3 DOSAGE FORM, QD
     Route: 065
     Dates: start: 20240823, end: 20240913
  3. KISQALI [Suspect]
     Active Substance: RIBOCICLIB SUCCINATE
     Dosage: 3 DOSAGE FORM, QD
     Route: 065
  4. KISQALI [Suspect]
     Active Substance: RIBOCICLIB SUCCINATE
     Route: 048
     Dates: start: 20240926
  5. KISQALI [Suspect]
     Active Substance: RIBOCICLIB SUCCINATE
     Route: 065
  6. KISQALI [Suspect]
     Active Substance: RIBOCICLIB SUCCINATE
     Route: 065
  7. KISQALI [Suspect]
     Active Substance: RIBOCICLIB SUCCINATE
     Route: 065
     Dates: start: 20240311
  8. KISQALI [Suspect]
     Active Substance: RIBOCICLIB SUCCINATE
     Dosage: 3 DOSAGE FORM, QD
     Route: 065
     Dates: start: 20240726, end: 20240816
  9. KISQALI [Suspect]
     Active Substance: RIBOCICLIB SUCCINATE
     Route: 065
     Dates: start: 20240623
  10. LETROZOLE [Suspect]
     Active Substance: LETROZOLE
     Indication: Product used for unknown indication
     Route: 065
  11. LETROZOLE [Suspect]
     Active Substance: LETROZOLE
     Route: 048
  12. ZOMETA [Suspect]
     Active Substance: ZOLEDRONIC ACID
     Indication: Product used for unknown indication
     Dosage: UNK, Q3MO
     Route: 065
  13. LOSARTAN POTASSIUM [Concomitant]
     Active Substance: LOSARTAN POTASSIUM
     Indication: Product used for unknown indication
     Route: 065
  14. DIPYRONE [Concomitant]
     Active Substance: DIPYRONE
     Indication: Product used for unknown indication
     Route: 065
  15. HYDROCHLOROTHIAZIDE [Concomitant]
     Active Substance: HYDROCHLOROTHIAZIDE
     Indication: Product used for unknown indication
     Route: 065

REACTIONS (32)
  - Spinal disorder [Recovered/Resolved with Sequelae]
  - Metastases to bone marrow [Unknown]
  - Metastases to liver [Unknown]
  - Metastases to lung [Unknown]
  - Breast cancer [Unknown]
  - Malignant neoplasm progression [Unknown]
  - Migraine [Recovering/Resolving]
  - Tension [Recovered/Resolved]
  - Sluggishness [Recovering/Resolving]
  - Ear discomfort [Recovering/Resolving]
  - Head discomfort [Recovered/Resolved]
  - Confusional state [Unknown]
  - Hunger [Unknown]
  - Photophobia [Unknown]
  - Eating disorder [Recovering/Resolving]
  - Feeling hot [Unknown]
  - Nail discolouration [Recovering/Resolving]
  - Pigmentation disorder [Recovering/Resolving]
  - Eye disorder [Recovering/Resolving]
  - Sciatic nerve neuropathy [Recovered/Resolved with Sequelae]
  - Malaise [Recovered/Resolved]
  - Malaise [Unknown]
  - Headache [Recovered/Resolved]
  - Headache [Not Recovered/Not Resolved]
  - Nausea [Recovered/Resolved]
  - Nausea [Not Recovered/Not Resolved]
  - Anxiety [Recovering/Resolving]
  - Depression [Recovering/Resolving]
  - Memory impairment [Unknown]
  - Hypertension [Unknown]
  - Fatigue [Unknown]
  - Inappropriate schedule of product administration [Unknown]

NARRATIVE: CASE EVENT DATE: 20240301
